FAERS Safety Report 6178684-X (Version None)
Quarter: 2009Q2

REPORT INFORMATION
  Report Type: 
  Country: None (occurrence: None)
  Receive Date: 20090430
  Receipt Date: 20090416
  Transmission Date: 20091009
  Serious: Yes (Other)
  Sender: FDA-Public Use
  Company Number: 2009US000917

PATIENT
  Age: 52 Year
  Sex: Female
  Weight: 61.7 kg

DRUGS (2)
  1. LEXISCAN [Suspect]
     Indication: SCAN MYOCARDIAL PERFUSION
     Dosage: 0.4, IV NOS
     Route: 042
     Dates: start: 20090316, end: 20090316
  2. ZOCOR [Concomitant]

REACTIONS (5)
  - BLOOD PRESSURE DECREASED [None]
  - CONVERSION DISORDER [None]
  - ELECTROCARDIOGRAM ST SEGMENT DEPRESSION [None]
  - HYPOAESTHESIA [None]
  - TREMOR [None]
